FAERS Safety Report 4314984-3 (Version None)
Quarter: 2004Q1

REPORT INFORMATION
  Report Type: 
  Country: None (occurrence: None)
  Receive Date: 20040310
  Receipt Date: 20040310
  Transmission Date: 20041129
  Serious: Yes (Other)
  Sender: FDA-Public Use
  Company Number: None

PATIENT
  Age: 24 Year
  Sex: Male

DRUGS (2)
  1. IBUPROFEN [Suspect]
     Indication: PYREXIA
     Dosage: 600 MG TABLET/ ONE TIME ORDER
     Dates: start: 20031103
  2. IBUPROFEN [Suspect]
     Indication: VIRAL INFECTION
     Dosage: 600 MG TABLET/ ONE TIME ORDER
     Dates: start: 20031103

REACTIONS (1)
  - HYPERSENSITIVITY [None]
